FAERS Safety Report 5875692-0 (Version None)
Quarter: 2008Q3

REPORT INFORMATION
  Report Type: 
  Country: None (occurrence: None)
  Receive Date: 20080904
  Receipt Date: 20080807
  Transmission Date: 20090109
  Serious: Yes (Other)
  Sender: FDA-Public Use
  Company Number: DSA_62078_2008

PATIENT
  Sex: Female
  Weight: 63.05 kg

DRUGS (8)
  1. MYSOLINE [Suspect]
     Indication: CONVULSION
     Dosage: (250 MG BID ORAL)
     Route: 048
     Dates: start: 20080401, end: 20080401
  2. MYSOLINE [Suspect]
     Indication: CONVULSION
     Dosage: (250 MG QD ORAL)
     Route: 048
     Dates: start: 20080401, end: 20080401
  3. MYSOLINE [Suspect]
     Indication: CONVULSION
     Dosage: (250 MG TID ORAL), (250 MG TID ORAL)
     Route: 048
     Dates: start: 19580101, end: 20080401
  4. MYSOLINE [Suspect]
     Indication: CONVULSION
     Dosage: (250 MG TID ORAL), (250 MG TID ORAL)
     Route: 048
     Dates: start: 20080401
  5. DEPAKOTE [Concomitant]
  6. DIAZEPAM [Concomitant]
  7. PERCOCET [Concomitant]
  8. ALLEGRA [Concomitant]

REACTIONS (3)
  - CONVULSION [None]
  - MALAISE [None]
  - MIGRAINE [None]
